FAERS Safety Report 19008812 (Version 1)
Quarter: 2021Q1

REPORT INFORMATION
  Report Type: Spontaneous
  Country: US (occurrence: US)
  Receive Date: 20210315
  Receipt Date: 20210315
  Transmission Date: 20210420
  Serious: Yes (Other)
  Sender: FDA-Public Use
  Company Number: US-NESTLEHEALTHSCIENCE-2021000018

PATIENT
  Age: 80 Year
  Sex: Female

DRUGS (2)
  1. ZENPEP [Suspect]
     Active Substance: PANCRELIPASE AMYLASE\PANCRELIPASE LIPASE\PANCRELIPASE PROTEASE
     Indication: PANCREATOLITHIASIS
     Dosage: USED 3 DIFFERENT STRENGTHS (10,000, 20,000 AND 40,000)
  2. INSULIN [Concomitant]
     Active Substance: INSULIN NOS

REACTIONS (5)
  - Dyspnoea [Unknown]
  - Product administration error [Unknown]
  - Pancreatic disorder [Unknown]
  - Abdominal pain upper [Unknown]
  - Lung neoplasm malignant [Unknown]
